FAERS Safety Report 5154439-X (Version None)
Quarter: 2006Q4

REPORT INFORMATION
  Report Type: 
  Country: None (occurrence: None)
  Receive Date: 20061114
  Receipt Date: 20061102
  Transmission Date: 20070319
  Serious: Yes (Hospitalization)
  Sender: FDA-Public Use
  Company Number: 2006135922

PATIENT
  Age: 60 Year
  Sex: Male
  Weight: 75 kg

DRUGS (3)
  1. CABERGOLINE [Suspect]
     Indication: PARKINSON'S DISEASE
     Dosage: 12 MG, ORAL
     Route: 048
     Dates: start: 19980101
  2. COMTESS (ENTACAPONE) [Concomitant]
  3. SINEMET [Concomitant]

REACTIONS (3)
  - CARDIAC VALVE DISEASE [None]
  - DYSPNOEA EXERTIONAL [None]
  - MITRAL VALVE INCOMPETENCE [None]
